FAERS Safety Report 7658585 (Version 2)
Quarter: 2018Q1

REPORT INFORMATION
  Report Type: Report from Study
  Country: US (occurrence: US)
  Receive Date: 20101105
  Receipt Date: 20180219
  Transmission Date: 20180509
  Serious: Yes (Hospitalization, Other)
  Sender: FDA-Public Use
  Company Number: US-ROCHE-738141

PATIENT

DRUGS (3)
  1. DOCETAXEL. [Suspect]
     Active Substance: DOCETAXEL
     Indication: HEAD AND NECK CANCER
     Route: 042
  2. CAPECITABINE. [Suspect]
     Active Substance: CAPECITABINE
     Route: 065
  3. CAPECITABINE. [Suspect]
     Active Substance: CAPECITABINE
     Indication: HEAD AND NECK CANCER
     Route: 065

REACTIONS (33)
  - Dyspnoea [Unknown]
  - Granulocytes abnormal [Unknown]
  - Ear, nose and throat examination abnormal [Unknown]
  - Hyperglycaemia [Unknown]
  - Fatigue [Unknown]
  - Palmar-plantar erythrodysaesthesia syndrome [Unknown]
  - Myocardial infarction [Unknown]
  - Nausea [Unknown]
  - Laryngeal pain [Unknown]
  - Lymphopenia [Unknown]
  - Leukopenia [Unknown]
  - Platelet count abnormal [Unknown]
  - Oesophagitis [Unknown]
  - Vomiting [Unknown]
  - Infection [Unknown]
  - Haemoglobin [Unknown]
  - Odynophagia [Unknown]
  - Oedema peripheral [Unknown]
  - Pain in extremity [Unknown]
  - Pharyngitis [Unknown]
  - Febrile neutropenia [Unknown]
  - Hyponatraemia [Unknown]
  - Oral pain [Unknown]
  - Pneumonia [Unknown]
  - Diarrhoea [Unknown]
  - Hypersensitivity [Unknown]
  - Myocardial ischaemia [Unknown]
  - Stomatitis [Unknown]
  - Neutrophil count abnormal [Unknown]
  - Dysphagia [Unknown]
  - Decreased appetite [Unknown]
  - Gastrointestinal haemorrhage [Unknown]
  - Aspartate aminotransferase increased [Unknown]
